FAERS Safety Report 20079490 (Version 8)
Quarter: 2023Q1

REPORT INFORMATION
  Report Type: Spontaneous
  Country: HU (occurrence: HU)
  Receive Date: 20211117
  Receipt Date: 20230222
  Transmission Date: 20230418
  Serious: Yes (Hospitalization, Other)
  Sender: FDA-Public Use
  Company Number: HU-NOVARTISPH-NVSC2021HU256541

PATIENT
  Age: 13 Month
  Sex: Male
  Weight: 6.9 kg

DRUGS (11)
  1. ZOLGENSMA [Suspect]
     Active Substance: ONASEMNOGENE ABEPARVOVEC-XIOI
     Indication: Spinal muscular atrophy
     Dosage: 38.7 ML
     Route: 065
  2. ZOLGENSMA [Suspect]
     Active Substance: ONASEMNOGENE ABEPARVOVEC-XIOI
     Dosage: 5.5 ML, QD
     Route: 065
  3. ZOLGENSMA [Suspect]
     Active Substance: ONASEMNOGENE ABEPARVOVEC-XIOI
     Dosage: 8.3 ML, Q5H
     Route: 065
  4. MONTELUKAST SODIUM [Suspect]
     Active Substance: MONTELUKAST SODIUM
     Indication: Product used for unknown indication
     Dosage: UNK
     Route: 065
  5. FAMOTIDINE [Concomitant]
     Active Substance: FAMOTIDINE
     Indication: Product used for unknown indication
     Dosage: 0.5 MG/KG, BID
     Route: 065
     Dates: start: 20210308, end: 20210513
  6. PREDNISOLONE [Concomitant]
     Active Substance: PREDNISOLONE
     Indication: Product used for unknown indication
     Dosage: 1 MG/KG, QD
     Route: 054
     Dates: start: 20210308, end: 20210408
  7. PREDNISOLONE [Concomitant]
     Active Substance: PREDNISOLONE
     Dosage: 0.75 MG/KG, QD
     Route: 054
     Dates: start: 20210409, end: 20210416
  8. PREDNISOLONE [Concomitant]
     Active Substance: PREDNISOLONE
     Dosage: 0.5 MG/KG, QD
     Route: 054
     Dates: start: 20210417, end: 20210424
  9. PREDNISOLONE [Concomitant]
     Active Substance: PREDNISOLONE
     Dosage: 0.25 MG/KG, QD
     Route: 054
     Dates: start: 20210425, end: 20210505
  10. PREDNISOLONE [Concomitant]
     Active Substance: PREDNISOLONE
     Dosage: 0.25 MG/KG, QD
     Route: 054
     Dates: start: 20210506, end: 20210513
  11. VIGANTOL [Concomitant]
     Indication: Product used for unknown indication
     Dosage: 2 DRP, QD (1/12 MILLILITRE)
     Route: 065
     Dates: start: 20210118

REACTIONS (17)
  - Dyspnoea [Recovered/Resolved]
  - Thrombocytopenia [Recovered/Resolved]
  - Complement factor decreased [Recovered/Resolved]
  - Blood creatine phosphokinase increased [Recovered/Resolved]
  - Tachyarrhythmia [Unknown]
  - Rib deformity [Unknown]
  - Echocardiogram abnormal [Unknown]
  - Bacterial disease carrier [Recovered/Resolved]
  - Ammonia decreased [Recovered/Resolved]
  - Hepatomegaly [Unknown]
  - Cardiomegaly [Unknown]
  - Spinal deformity [Unknown]
  - Blood lactate dehydrogenase increased [Recovered/Resolved]
  - Increased bronchial secretion [Not Recovered/Not Resolved]
  - Salivary hypersecretion [Not Recovered/Not Resolved]
  - Troponin I increased [Recovered/Resolved]
  - Aspartate aminotransferase increased [Recovered/Resolved]

NARRATIVE: CASE EVENT DATE: 20210118
